FAERS Safety Report 11668462 (Version 2)
Quarter: 2016Q2

REPORT INFORMATION
  Report Type: Spontaneous
  Country: US (occurrence: US)
  Receive Date: 20151027
  Receipt Date: 20160513
  Transmission Date: 20160815
  Serious: Yes (Other)
  Sender: FDA-Public Use
  Company Number: US-009507513-1510USA009977

PATIENT
  Age: 31 Year
  Sex: Female

DRUGS (8)
  1. PEGASYS [Suspect]
     Active Substance: PEGINTERFERON ALFA-2A
     Indication: CHRONIC HEPATITIS C
     Dosage: 180 MICROGRAM, QW (STRENGHT: 180MCG/0.5 ML)
     Route: 058
     Dates: start: 20130516
  2. COPEGUS [Suspect]
     Active Substance: RIBAVIRIN
     Dosage: 200 MG EVERY PM
     Route: 048
     Dates: start: 20130516, end: 20130612
  3. BENADRYL [Concomitant]
     Active Substance: DIPHENHYDRAMINE HYDROCHLORIDE
     Dosage: 25 MG, UNK
  4. COPEGUS [Suspect]
     Active Substance: RIBAVIRIN
     Dosage: 200 MG EVERY AM
     Route: 048
     Dates: start: 20130516, end: 20130612
  5. VICTRELIS [Suspect]
     Active Substance: BOCEPREVIR
     Indication: CHRONIC HEPATITIS C
     Dosage: 800 MG, TID (4 CAPSULES, 3 IN 1 D)
     Route: 048
     Dates: start: 201306, end: 20130819
  6. MELATONIN [Concomitant]
     Active Substance: MELATONIN
     Dosage: 2 MG, UNK
     Route: 048
  7. COPEGUS [Suspect]
     Active Substance: RIBAVIRIN
     Indication: CHRONIC HEPATITIS C
     Dosage: 400 MG, QAM
     Route: 048
     Dates: start: 20130613
  8. COPEGUS [Suspect]
     Active Substance: RIBAVIRIN
     Dosage: 400 MG, QPM
     Route: 048
     Dates: start: 20130613

REACTIONS (4)
  - Blindness [Recovered/Resolved]
  - Headache [Unknown]
  - Fatigue [Unknown]
  - Malaise [Unknown]

NARRATIVE: CASE EVENT DATE: 2013
